FAERS Safety Report 10213971 (Version 1)
Quarter: 2014Q2

REPORT INFORMATION
  Report Type: Spontaneous
  Country: US (occurrence: None)
  Receive Date: 20140602
  Receipt Date: 20140602
  Transmission Date: 20141212
  Serious: Yes (Death, Hospitalization)
  Sender: FDA-Public Use
  Company Number: None

PATIENT
  Age: 85 Year
  Sex: Male
  Weight: 77.11 kg

DRUGS (1)
  1. XARELTO JANSSEN [Suspect]
     Indication: THROMBOSIS
     Dates: start: 20140314, end: 20140408

REACTIONS (3)
  - Haemorrhage [None]
  - Myocardial infarction [None]
  - Thrombosis [None]
